FAERS Safety Report 23196265 (Version 1)
Quarter: 2023Q4

REPORT INFORMATION
  Report Type: Spontaneous
  Country: US (occurrence: US)
  Receive Date: 20231117
  Receipt Date: 20231117
  Transmission Date: 20240109
  Serious: No
  Sender: FDA-Public Use
  Company Number: US-BAYER-2023A156241

PATIENT
  Age: 68 Year
  Sex: Female

DRUGS (1)
  1. CLIMARA PRO [Suspect]
     Active Substance: ESTRADIOL\LEVONORGESTREL
     Indication: Atrophic vulvovaginitis
     Dosage: UNK

REACTIONS (3)
  - Device defective [None]
  - Off label use of device [None]
  - Device use issue [None]
